FAERS Safety Report 17854586 (Version 1)
Quarter: 2020Q2

REPORT INFORMATION
  Report Type: Spontaneous
  Country: US (occurrence: US)
  Receive Date: 20200602
  Receipt Date: 20200602
  Transmission Date: 20200714
  Serious: Yes (Hospitalization)
  Sender: FDA-Public Use
  Company Number: None

PATIENT
  Sex: Female

DRUGS (9)
  1. CLONAZEPAM. [Suspect]
     Active Substance: CLONAZEPAM
  2. TOBRAMYCIN  300MG /5ML 20ML [Suspect]
     Active Substance: TOBRAMYCIN
     Indication: BRONCHIECTASIS
     Dosage: ?          OTHER ROUTE:INH-28 DON=28D OFF?
     Dates: start: 20181128
  3. SYMBICORT [Suspect]
     Active Substance: BUDESONIDE\FORMOTEROL FUMARATE DIHYDRATE
  4. PREDNISONE. [Suspect]
     Active Substance: PREDNISONE
  5. CLINDAMYCIN. [Suspect]
     Active Substance: CLINDAMYCIN
  6. CIPROFLOXACIN. [Suspect]
     Active Substance: CIPROFLOXACIN
  7. HYDROMET [Suspect]
     Active Substance: HOMATROPINE METHYLBROMIDE\HYDROCODONE BITARTRATE
  8. OSELTAMIVIR [Suspect]
     Active Substance: OSELTAMIVIR
  9. LEVOFLOXACIN. [Suspect]
     Active Substance: LEVOFLOXACIN

REACTIONS (1)
  - Dyspnoea [None]
